FAERS Safety Report 4389811-0 (Version None)
Quarter: 2004Q2

REPORT INFORMATION
  Report Type: 
  Country: None (occurrence: None)
  Receive Date: 20040630
  Receipt Date: 20040617
  Transmission Date: 20050107
  Serious: Yes (Death)
  Sender: FDA-Public Use
  Company Number: US-JNJFOC-20040604645

PATIENT
  Sex: Male

DRUGS (2)
  1. NATRECOR [Suspect]
     Dosage: INTRAVENOUS
     Route: 042
  2. DOPAMINE HCL [Concomitant]

REACTIONS (1)
  - VENTRICULAR TACHYCARDIA [None]
